FAERS Safety Report 9100110 (Version 1)
Quarter: 2013Q1

REPORT INFORMATION
  Report Type: Report from Study
  Country: DE (occurrence: DE)
  Receive Date: 20130215
  Receipt Date: 20130215
  Transmission Date: 20140127
  Serious: Yes (Hospitalization, Other)
  Sender: FDA-Public Use
  Company Number: DE-ABBOTT-12P-062-1008098-00

PATIENT
  Age: 58 Year
  Sex: Female
  Weight: 95 kg

DRUGS (1)
  1. HUMIRA [Suspect]
     Indication: PRODUCT USED FOR UNKNOWN INDICATION
     Route: 058
     Dates: start: 2008

REACTIONS (6)
  - Aphasia [Unknown]
  - Pyrexia [Unknown]
  - Urosepsis [Unknown]
  - Cystitis [Unknown]
  - Arthropod bite [Unknown]
  - Erythema migrans [Unknown]
